FAERS Safety Report 9440365 (Version 2)
Quarter: 2013Q3

REPORT INFORMATION
  Report Type: Other
  Country: SA (occurrence: SA)
  Receive Date: 20130805
  Receipt Date: 20130821
  Transmission Date: 20140515
  Serious: Yes (Hospitalization, Other)
  Sender: FDA-Public Use
  Company Number: SA-US-EMD SERONO, INC.-7226163

PATIENT
  Age: 30 Year
  Sex: Female

DRUGS (2)
  1. CHORIOGONADOTROPIN ALFA [Suspect]
     Indication: OVULATION INDUCTION
  2. CLOMIPHENE [Suspect]
     Indication: OVULATION INDUCTION
     Route: 048

REACTIONS (3)
  - Ovarian hyperstimulation syndrome [Unknown]
  - Abortion spontaneous [Recovered/Resolved]
  - Multiple pregnancy [Recovered/Resolved]
